FAERS Safety Report 20233029 (Version 1)
Quarter: 2021Q4

REPORT INFORMATION
  Report Type: Report from Study
  Country: CA (occurrence: None)
  Receive Date: 20211227
  Receipt Date: 20211227
  Transmission Date: 20220303
  Serious: Yes (Death)
  Sender: FDA-Public Use
  Company Number: 2021A894229

PATIENT
  Sex: Male

DRUGS (2)
  1. CALQUENCE [Suspect]
     Active Substance: ACALABRUTINIB
     Indication: Chronic lymphocytic leukaemia
     Route: 048
     Dates: start: 20210721, end: 20211213
  2. IMBRUVICA [Concomitant]
     Active Substance: IBRUTINIB
     Dosage: UNKNOWN
     Route: 065

REACTIONS (1)
  - Death [Fatal]
